FAERS Safety Report 9157951 (Version 1)
Quarter: 2013Q1

REPORT INFORMATION
  Report Type: Spontaneous
  Country: PT (occurrence: None)
  Receive Date: 20130211
  Receipt Date: 20130211
  Transmission Date: 20140127
  Serious: Yes (Other)
  Sender: FDA-Public Use
  Company Number: THQ2012A04499

PATIENT
  Age: 66 Year
  Sex: Male

DRUGS (3)
  1. ACTOS (PIOGLITAZONE HYDROCHLORIDE) [Suspect]
     Indication: TYPE 2 DIABETES MELLITUS
     Dosage: 30 MG (1 D) 10YEARS
     Route: 048
     Dates: start: 2002, end: 201204
  2. GLICLAZIDE [Concomitant]
  3. METFORMIN [Concomitant]

REACTIONS (3)
  - Bladder cancer recurrent [None]
  - Metastatic neoplasm [None]
  - Bladder neoplasm [None]
